FAERS Safety Report 4971673-X (Version None)
Quarter: 2006Q2

REPORT INFORMATION
  Report Type: 
  Country: None (occurrence: None)
  Receive Date: 20060407
  Receipt Date: 20060323
  Transmission Date: 20061013
  Serious: Yes (Hospitalization)
  Sender: FDA-Public Use
  Company Number: 2006BH007299

PATIENT
  Sex: Female

DRUGS (1)
  1. DIANEAL UNKNOWN [Suspect]
     Indication: RENAL FAILURE CHRONIC
     Dosage: IP
     Route: 033

REACTIONS (2)
  - PERITONITIS BACTERIAL [None]
  - SERRATIA INFECTION [None]
